FAERS Safety Report 9562751 (Version 4)
Quarter: 2014Q1

REPORT INFORMATION
  Report Type: Spontaneous
  Country: US (occurrence: US)
  Receive Date: 20130927
  Receipt Date: 20140313
  Transmission Date: 20141002
  Serious: Yes (Hospitalization, Other)
  Sender: FDA-Public Use
  Company Number: US-BAXTER-2013BAX035944

PATIENT
  Age: 73 Year
  Sex: Male
  Weight: 85.91 kg

DRUGS (7)
  1. DIANEAL PD2 [Suspect]
     Indication: RENAL FAILURE CHRONIC
     Dosage: 12 TO 15 LITERS
     Route: 033
     Dates: start: 201211
  2. DIANEAL PD2 [Suspect]
     Indication: RENAL FAILURE CHRONIC
     Dosage: 12 TO 15 LITERS
     Route: 033
     Dates: start: 201211
  3. DIANEAL PD2 (ULTRABAG) [Suspect]
     Indication: RENAL FAILURE CHRONIC
     Route: 033
     Dates: start: 20120827, end: 201211
  4. DIANEAL PD2 (ULTRABAG) [Suspect]
     Route: 033
     Dates: start: 20140211
  5. DIANEAL PD2 (ULTRABAG) [Suspect]
     Indication: RENAL FAILURE CHRONIC
     Route: 033
     Dates: start: 20120827, end: 201211
  6. DIANEAL PD2 (ULTRABAG) [Suspect]
     Route: 033
     Dates: start: 20140211
  7. EXTRANEAL [Suspect]
     Indication: RENAL FAILURE CHRONIC
     Route: 033
     Dates: start: 2013, end: 2014

REACTIONS (8)
  - Cholelithiasis [Recovering/Resolving]
  - Diverticulitis [Recovering/Resolving]
  - Haemoglobin decreased [Recovering/Resolving]
  - Haemorrhoidal haemorrhage [Recovering/Resolving]
  - Haemorrhoids [Recovering/Resolving]
  - Constipation [Recovering/Resolving]
  - Hypotension [Recovering/Resolving]
  - Dyspnoea [Recovering/Resolving]
